FAERS Safety Report 19060031 (Version 1)
Quarter: 2021Q1

REPORT INFORMATION
  Report Type: Spontaneous
  Country: CA (occurrence: CA)
  Receive Date: 20210326
  Receipt Date: 20210326
  Transmission Date: 20210420
  Serious: Yes (Hospitalization, Other)
  Sender: FDA-Public Use
  Company Number: CA-LUPIN PHARMACEUTICALS INC.-2021-03648

PATIENT
  Age: 45 Year
  Sex: Female

DRUGS (2)
  1. METHYLPREDNISOLONE. [Suspect]
     Active Substance: METHYLPREDNISOLONE
     Indication: CONCENTRIC SCLEROSIS
     Dosage: 1 GRAM, QD
     Route: 042
  2. NATALIZUMAB [Suspect]
     Active Substance: NATALIZUMAB
     Indication: CONCENTRIC SCLEROSIS
     Dosage: 300 MILLIGRAM EVERY 4 WEEKS
     Route: 042

REACTIONS (5)
  - B-cell lymphoma [Recovering/Resolving]
  - Non-Hodgkin^s lymphoma [Recovering/Resolving]
  - Central nervous system lymphoma [Recovering/Resolving]
  - Bradycardia [Recovering/Resolving]
  - Condition aggravated [Recovering/Resolving]
